FAERS Safety Report 22207212 (Version 1)
Quarter: 2023Q2

REPORT INFORMATION
  Report Type: Spontaneous
  Country: US (occurrence: US)
  Receive Date: 20230413
  Receipt Date: 20230413
  Transmission Date: 20230721
  Serious: Yes (Other)
  Sender: FDA-Public Use
  Company Number: US-STRIDES ARCOLAB LIMITED-2023SP004911

PATIENT

DRUGS (4)
  1. RANITIDINE [Suspect]
     Active Substance: RANITIDINE
     Indication: Product used for unknown indication
     Dosage: RANITIDINE (ZANTAC) (PRESCRIPTION),
     Route: 065
     Dates: start: 2008, end: 2016
  2. RANITIDINE [Suspect]
     Active Substance: RANITIDINE
     Dosage: UNK; RANITIDINE (PRESCRIPTION)
     Route: 065
     Dates: start: 2008, end: 2016
  3. RANITIDINE [Suspect]
     Active Substance: RANITIDINE
     Dosage: UNK; RANITIDINE (ZANTAC) (OVER THE COUNTER)
     Route: 065
     Dates: start: 2008, end: 2016
  4. RANITIDINE [Suspect]
     Active Substance: RANITIDINE
     Dosage: RANITIDINE (OVER THE COUNTER)
     Route: 065
     Dates: start: 2008, end: 2016

REACTIONS (1)
  - Bladder cancer [Unknown]

NARRATIVE: CASE EVENT DATE: 20120101
